FAERS Safety Report 7130572-8 (Version None)
Quarter: 2010Q4

REPORT INFORMATION
  Report Type: 
  Country: None (occurrence: None)
  Receive Date: 20101201
  Receipt Date: 20080618
  Transmission Date: 20110411
  Serious: Yes (Congenital Anomaly, Other)
  Sender: FDA-Public Use
  Company Number: GB-SANOFI-AVENTIS-200813307EU

PATIENT
  Sex: Male

DRUGS (6)
  1. CLEXANE [Suspect]
     Indication: IN VITRO FERTILISATION
     Route: 064
     Dates: start: 20080528, end: 20081220
  2. GESTONE [Concomitant]
     Indication: IN VITRO FERTILISATION
     Dosage: DOSE AS USED: 100-150 MG
     Route: 064
     Dates: start: 20080603, end: 20080718
  3. PROGESTERONE [Concomitant]
     Indication: IN VITRO FERTILISATION
     Route: 064
     Dates: start: 20080603, end: 20080716
  4. ASPIRIN [Concomitant]
     Indication: IN VITRO FERTILISATION
     Route: 064
     Dates: start: 20080519
  5. DEXAMETHASONE [Concomitant]
     Indication: IN VITRO FERTILISATION
     Route: 064
     Dates: start: 20080603, end: 20080701
  6. FOLIC ACID [Concomitant]
     Indication: IN VITRO FERTILISATION
     Route: 064

REACTIONS (5)
  - ATRIAL SEPTAL DEFECT [None]
  - CONVULSION [None]
  - CRYPTORCHISM [None]
  - DRUG EXPOSURE DURING PREGNANCY [None]
  - VENTRICULAR SEPTAL DEFECT [None]
